FAERS Safety Report 7396006-3 (Version None)
Quarter: 2011Q2

REPORT INFORMATION
  Report Type: 
  Country: None (occurrence: None)
  Receive Date: 20110406
  Receipt Date: 20110331
  Transmission Date: 20111010
  Serious: Yes (Hospitalization)
  Sender: FDA-Public Use
  Company Number: US-RANBAXY-2011US-41540

PATIENT

DRUGS (1)
  1. CLINDAMYCIN [Suspect]
     Indication: ENDODONTIC PROCEDURE
     Dosage: 300 MG, UNK
     Route: 048
     Dates: start: 20110101

REACTIONS (6)
  - CHEST PAIN [None]
  - NAUSEA [None]
  - SYNCOPE [None]
  - DYSPHAGIA [None]
  - DIZZINESS [None]
  - OESOPHAGEAL PAIN [None]
